FAERS Safety Report 9254478 (Version 3)
Quarter: 2013Q3

REPORT INFORMATION
  Report Type: Spontaneous
  Country: US (occurrence: US)
  Receive Date: 20130425
  Receipt Date: 20130723
  Transmission Date: 20140515
  Serious: No
  Sender: FDA-Public Use
  Company Number: US-MYLANLABS-2013S1005802

PATIENT
  Age: 72 Year
  Sex: Female

DRUGS (3)
  1. RIZATRIPTAN BENZOATE ORALLY DISINTEGRATING TABLETS [Suspect]
     Indication: MIGRAINE
     Route: 048
     Dates: start: 20130110, end: 20130110
  2. GABAPENTIN [Concomitant]
  3. ALEVE [Concomitant]

REACTIONS (3)
  - Dizziness [Not Recovered/Not Resolved]
  - Malaise [Not Recovered/Not Resolved]
  - Unevaluable event [Not Recovered/Not Resolved]
